FAERS Safety Report 13121989 (Version 1)
Quarter: 2017Q1

REPORT INFORMATION
  Report Type: Spontaneous
  Country: US (occurrence: US)
  Receive Date: 20170116
  Receipt Date: 20170116
  Transmission Date: 20170428
  Serious: No
  Sender: FDA-Public Use
  Company Number: None

PATIENT
  Age: 59 Year
  Sex: Female
  Weight: 81 kg

DRUGS (12)
  1. JUXTAPID [Concomitant]
     Active Substance: LOMITAPIDE MESYLATE
  2. LINZESS [Suspect]
     Active Substance: LINACLOTIDE
     Indication: CONSTIPATION
     Dosage: ?          QUANTITY:1 CAPSULE(S);?
     Route: 048
     Dates: start: 20170116, end: 20170116
  3. MEDTRONIC TWO-LEAD PACEMAKER [Concomitant]
  4. CRESTOR [Concomitant]
     Active Substance: ROSUVASTATIN CALCIUM
  5. TRICOR [Concomitant]
     Active Substance: FENOFIBRATE
  6. ASA [Concomitant]
     Active Substance: ASPIRIN
  7. EFFEXOR [Concomitant]
     Active Substance: VENLAFAXINE HYDROCHLORIDE
  8. VITAMIN D3 [Concomitant]
     Active Substance: CHOLECALCIFEROL
  9. OMEPRAZOLE. [Concomitant]
     Active Substance: OMEPRAZOLE
  10. COREG [Concomitant]
     Active Substance: CARVEDILOL
  11. NORVASC [Concomitant]
     Active Substance: AMLODIPINE BESYLATE
  12. VITAMIN E [Concomitant]
     Active Substance: .ALPHA.-TOCOPHEROL

REACTIONS (2)
  - Chest discomfort [None]
  - Blood pressure increased [None]

NARRATIVE: CASE EVENT DATE: 20170116
